FAERS Safety Report 7669683-7 (Version None)
Quarter: 2011Q3

REPORT INFORMATION
  Report Type: 
  Country: None (occurrence: None)
  Receive Date: 20110808
  Receipt Date: 20101004
  Transmission Date: 20111222
  Serious: Yes (Other)
  Sender: FDA-Public Use
  Company Number: US-BAYER-201023627NA

PATIENT
  Age: 39 Year
  Sex: Female

DRUGS (3)
  1. DROSPIRENONE AND ETHINYL ESTRADIOL [Suspect]
     Route: 048
     Dates: start: 20030301, end: 20091001
  2. YAZ [Suspect]
     Route: 048
     Dates: start: 20030301, end: 20091015
  3. YASMIN [Suspect]
     Indication: PRODUCT USED FOR UNKNOWN INDICATION
     Route: 048
     Dates: start: 20030301, end: 20091001

REACTIONS (3)
  - GASTRIC DISORDER [None]
  - VOMITING [None]
  - CHOLELITHIASIS [None]
